FAERS Safety Report 6833320-1 (Version None)
Quarter: 2010Q3

REPORT INFORMATION
  Report Type: 
  Country: None (occurrence: None)
  Receive Date: 20100712
  Receipt Date: 20100531
  Transmission Date: 20110219
  Serious: Yes (Other)
  Sender: FDA-Public Use
  Company Number: PHHY2010DE35239

PATIENT
  Age: 20 Year
  Sex: Male

DRUGS (3)
  1. CICLOSPORIN [Suspect]
     Indication: APLASTIC ANAEMIA
     Dosage: UNK
  2. ANTITHYMOCYTE IMMUNOGLOBULIN [Concomitant]
  3. STEROIDS NOS [Concomitant]

REACTIONS (7)
  - BENIGN INTRACRANIAL HYPERTENSION [None]
  - BONE MARROW FAILURE [None]
  - HEADACHE [None]
  - PANCYTOPENIA [None]
  - PAPILLARY MUSCLE HAEMORRHAGE [None]
  - PAPILLOEDEMA [None]
  - VISUAL FIELD DEFECT [None]
